FAERS Safety Report 5301864-X (Version None)
Quarter: 2007Q2

REPORT INFORMATION
  Report Type: 
  Country: None (occurrence: None)
  Receive Date: 20070419
  Receipt Date: 20070220
  Transmission Date: 20071010
  Serious: Yes (Hospitalization)
  Sender: FDA-Public Use
  Company Number: GB-ROCHE-489929

PATIENT
  Age: 67 Year
  Sex: Male
  Weight: 87 kg

DRUGS (6)
  1. CAPECITABINE [Suspect]
     Route: 048
  2. CISPLATIN [Suspect]
     Dosage: GIVEN ON DAY ONE OF A THREE-WEEK-CYCLE.
     Route: 042
     Dates: start: 20060830, end: 20060830
  3. EPIRUBICIN [Suspect]
     Dosage: GIVEN ON DAY ONE OF A THREE-WEEK-CYCLE.
     Route: 042
     Dates: start: 20060830, end: 20060830
  4. NIFEDIPINE [Concomitant]
     Route: 048
  5. IBUPROFEN [Concomitant]
     Route: 048
  6. ENALAPRIL [Concomitant]
     Route: 048

REACTIONS (1)
  - ARTERIOSPASM CORONARY [None]
